FAERS Safety Report 8011563-1 (Version None)
Quarter: 2011Q4

REPORT INFORMATION
  Report Type: 
  Country: None (occurrence: None)
  Receive Date: 20111228
  Receipt Date: 20111214
  Transmission Date: 20120403
  Serious: No
  Sender: FDA-Public Use
  Company Number: US-PFIZER INC-2011299743

PATIENT
  Sex: Female

DRUGS (3)
  1. VENLAFAXINE HCL [Suspect]
     Indication: ANXIETY
     Dosage: UNK
     Route: 048
     Dates: start: 20111201, end: 20111202
  2. VENLAFAXINE HCL [Suspect]
     Indication: PHOBIA
  3. KLONOPIN [Concomitant]
     Indication: ANXIETY
     Dosage: UNK

REACTIONS (13)
  - MYALGIA [None]
  - HYPERTENSION [None]
  - HALLUCINATION [None]
  - MYDRIASIS [None]
  - DYSPEPSIA [None]
  - DIZZINESS [None]
  - WRONG TECHNIQUE IN DRUG USAGE PROCESS [None]
  - MUSCLE SPASMS [None]
  - VERTIGO [None]
  - THINKING ABNORMAL [None]
  - GASTROOESOPHAGEAL REFLUX DISEASE [None]
  - NAUSEA [None]
  - MUSCULOSKELETAL STIFFNESS [None]
